FAERS Safety Report 9455212 (Version 1)
Quarter: 2013Q3

REPORT INFORMATION
  Report Type: Spontaneous
  Country: US (occurrence: US)
  Receive Date: 20130813
  Receipt Date: 20130813
  Transmission Date: 20140515
  Serious: Yes (Other)
  Sender: FDA-Public Use
  Company Number: US-AMGEN-USASP2013055651

PATIENT
  Age: 58 Year
  Sex: Female

DRUGS (7)
  1. PROLIA [Suspect]
     Indication: OSTEOPOROSIS POSTMENOPAUSAL
     Dosage: UNK
     Route: 065
     Dates: start: 20110626
  2. CRESTOR [Concomitant]
     Dosage: 5 MG, QHS
  3. BIOTIN [Concomitant]
     Dosage: 5000 MUG, QD
  4. FISH OIL [Concomitant]
     Dosage: 1000 MG, QD
  5. NEXIUM                             /01479302/ [Concomitant]
     Dosage: 40 MG, QD
  6. MULTIVITAMINS [Concomitant]
     Dosage: 50 UNK, QD
  7. CALCIUM WITH VITAMIN D             /00944201/ [Concomitant]
     Dosage: 600 MG, BID

REACTIONS (7)
  - Impaired healing [Unknown]
  - Tooth fracture [Unknown]
  - Bone density decreased [Unknown]
  - Arthropathy [Unknown]
  - Inappropriate schedule of drug administration [Unknown]
  - Arthralgia [Unknown]
  - Osteoarthritis [Unknown]
